FAERS Safety Report 19788607 (Version 1)
Quarter: 2021Q3

REPORT INFORMATION
  Report Type: Spontaneous
  Country: US (occurrence: US)
  Receive Date: 20210904
  Receipt Date: 20210904
  Transmission Date: 20211014
  Serious: No
  Sender: FDA-Public Use
  Company Number: US-DRREDDYS-SPO/USA/21/0139579

PATIENT
  Age: 61 Year
  Sex: Male
  Weight: 146.25 kg

DRUGS (2)
  1. NICOTINE. [Suspect]
     Active Substance: NICOTINE
     Indication: TOBACCO USER
     Route: 062
     Dates: start: 20210809, end: 20210823
  2. NICOTINE POLACRILEX [Suspect]
     Active Substance: NICOTINE
     Indication: TOBACCO USER
     Dates: start: 20210809, end: 20210823

REACTIONS (3)
  - Therapy cessation [Unknown]
  - Nicotine dependence [Unknown]
  - Treatment noncompliance [Unknown]
